FAERS Safety Report 25321329 (Version 8)
Quarter: 2025Q3

REPORT INFORMATION
  Report Type: Report from Study
  Country: GB (occurrence: GB)
  Receive Date: 20250515
  Receipt Date: 20250721
  Transmission Date: 20251021
  Serious: Yes (Other)
  Sender: UCB
  Company Number: GB-UCBSA-2025022626

PATIENT
  Age: 34 Year
  Sex: Male
  Weight: 113.5 kg

DRUGS (4)
  1. BIMEKIZUMAB [Suspect]
     Active Substance: BIMEKIZUMAB
     Indication: Psoriatic arthropathy
     Dosage: 160 MILLIGRAM, MONTHLY (QM)
     Route: 058
     Dates: start: 20250114, end: 20250211
  2. METHOTREXATE [Concomitant]
     Active Substance: METHOTREXATE
     Indication: Psoriatic arthropathy
     Dosage: 25 MILLIGRAM, WEEKLY (QW)
     Dates: start: 20221102
  3. NYSTATIN [Concomitant]
     Active Substance: NYSTATIN
     Indication: Psoriatic arthropathy
     Dosage: 160 MILLIGRAM, MONTHLY (QM)
     Route: 058
     Dates: start: 20250114
  4. NYSTATIN [Concomitant]
     Active Substance: NYSTATIN
     Indication: Oral candidiasis
     Dosage: 100000 MILLILITER, 4X/DAY (QID)
     Dates: start: 20250331

REACTIONS (8)
  - Lower respiratory tract infection [Recovered/Resolved]
  - Anal abscess [Recovered/Resolved]
  - Diarrhoea [Recovered/Resolved]
  - Folliculitis [Recovered/Resolved]
  - Oral candidiasis [Recovered/Resolved]
  - Tinea capitis [Not Recovered/Not Resolved]
  - Sinusitis [Recovered/Resolved]
  - Ear infection [Recovered/Resolved]

NARRATIVE: CASE EVENT DATE: 20250120
